FAERS Safety Report 7179351-6 (Version None)
Quarter: 2010Q4

REPORT INFORMATION
  Report Type: 
  Country: None (occurrence: None)
  Receive Date: 20101221
  Receipt Date: 20101208
  Transmission Date: 20110411
  Serious: Yes (Other)
  Sender: FDA-Public Use
  Company Number: PHHY2010AT84366

PATIENT
  Sex: Female
  Weight: 50 kg

DRUGS (1)
  1. RASILEZ [Suspect]
     Indication: HYPERTENSION
     Dosage: 1 TIMES IN 1 DAY
     Dates: start: 20090801, end: 20100701

REACTIONS (4)
  - ADDUCTOR VOCAL CORD WEAKNESS [None]
  - DYSPHONIA [None]
  - MUSCULAR WEAKNESS [None]
  - MYALGIA [None]
